FAERS Safety Report 9098301 (Version 3)
Quarter: 2013Q2

REPORT INFORMATION
  Report Type: Report from Study
  Country: CA (occurrence: CA)
  Receive Date: 20130213
  Receipt Date: 20130409
  Transmission Date: 20140414
  Serious: Yes (Death, Hospitalization)
  Sender: FDA-Public Use
  Company Number: CA-ROCHE-1190043

PATIENT
  Age: 72 Year
  Sex: Female
  Weight: 72.6 kg

DRUGS (11)
  1. RITUXAN [Suspect]
     Indication: RHEUMATOID ARTHRITIS
     Route: 042
     Dates: start: 20090929, end: 20120730
  2. BISOPROLOL [Concomitant]
  3. HYDROCHLOROTHIAZIDE [Concomitant]
  4. PREDNISONE [Concomitant]
  5. PERCOCET [Concomitant]
  6. XANAX [Concomitant]
  7. VITAMIN E [Concomitant]
  8. ASA (ACETYLSALICYLIC ACID) [Concomitant]
     Route: 065
  9. DIPHENHYDRAMINE HCL [Concomitant]
     Indication: PREMEDICATION
     Route: 048
     Dates: start: 20090929, end: 20120730
  10. ACETAMINOPHEN [Concomitant]
     Indication: PREMEDICATION
     Route: 048
     Dates: start: 20090929, end: 20120730
  11. METHYLPREDNISOLONE [Concomitant]
     Indication: PREMEDICATION
     Route: 042
     Dates: start: 20090929, end: 20120730

REACTIONS (5)
  - Death [Fatal]
  - Hepatic cancer [Not Recovered/Not Resolved]
  - Bile duct obstruction [Unknown]
  - Vomiting [Unknown]
  - Eating disorder [Unknown]
